FAERS Safety Report 19741537 (Version 4)
Quarter: 2022Q1

REPORT INFORMATION
  Report Type: Report from Study
  Country: US (occurrence: US)
  Receive Date: 20210825
  Receipt Date: 20220324
  Transmission Date: 20220423
  Serious: No
  Sender: FDA-Public Use
  Company Number: US-IPSEN BIOPHARMACEUTICALS, INC.-2021-20322

PATIENT
  Age: 13 Year
  Sex: Female
  Weight: 24.9 kg

DRUGS (4)
  1. INCRELEX [Suspect]
     Active Substance: MECASERMIN
     Indication: Short stature
     Dosage: 15 U= 60.24 UG/KG
     Route: 058
     Dates: start: 202104
  2. INCRELEX [Suspect]
     Active Substance: MECASERMIN
     Indication: Cytogenetic abnormality
  3. INCRELEX [Suspect]
     Active Substance: MECASERMIN
     Indication: Off label use
  4. PREDNISONE [Suspect]
     Active Substance: PREDNISONE
     Indication: Product used for unknown indication
     Dosage: NOT REPORTED
     Route: 065

REACTIONS (6)
  - Decreased appetite [Recovering/Resolving]
  - Eczema [Recovering/Resolving]
  - Mood swings [Recovering/Resolving]
  - Product dose omission issue [Unknown]
  - Off label use [Unknown]
  - Product dose omission issue [Unknown]

NARRATIVE: CASE EVENT DATE: 20210101
